FAERS Safety Report 14767915 (Version 1)
Quarter: 2018Q2

REPORT INFORMATION
  Report Type: Spontaneous
  Country: US (occurrence: US)
  Receive Date: 20180410
  Receipt Date: 20180410
  Transmission Date: 20180711
  Serious: Yes (Hospitalization)
  Sender: FDA-Public Use
  Company Number: None

PATIENT
  Age: 71 Year
  Sex: Male

DRUGS (16)
  1. PROAIR HFA [Concomitant]
     Active Substance: ALBUTEROL SULFATE
  2. SIMPONI [Suspect]
     Active Substance: GOLIMUMAB
     Indication: RHEUMATOID ARTHRITIS
     Dosage: 50 MG ONCE MONTHLY UNDER THE SKIN
     Route: 030
     Dates: start: 20091007
  3. VENTOLIN [Concomitant]
     Active Substance: ALBUTEROL SULFATE
  4. MULTI-MINERA [Concomitant]
  5. VITAMIN C [Concomitant]
     Active Substance: ASCORBIC ACID
  6. MUPRIOCIN [Concomitant]
  7. QNASL [Concomitant]
     Active Substance: BECLOMETHASONE DIPROPIONATE
  8. KNEE BRACE [Concomitant]
  9. LORATADINE. [Concomitant]
     Active Substance: LORATADINE
  10. PROBIOTIC [Concomitant]
     Active Substance: PROBIOTICS NOS
  11. MUCINEX [Concomitant]
     Active Substance: GUAIFENESIN
  12. FLOVENT [Concomitant]
     Active Substance: FLUTICASONE PROPIONATE
  13. CALCIUM + D3 [Concomitant]
     Active Substance: CALCIUM\CHOLECALCIFEROL
  14. COQ10 [Concomitant]
     Active Substance: UBIDECARENONE
  15. RA CA [Concomitant]
  16. OXYCODONE AND ACETAMINOPHEN [Concomitant]
     Active Substance: ACETAMINOPHEN\OXYCODONE HYDROCHLORIDE

REACTIONS (1)
  - Knee operation [None]

NARRATIVE: CASE EVENT DATE: 201804
